FAERS Safety Report 11767868 (Version 4)
Quarter: 2015Q4

REPORT INFORMATION
  Report Type: Spontaneous
  Country: IN (occurrence: IN)
  Receive Date: 20151123
  Receipt Date: 20151231
  Transmission Date: 20160304
  Serious: Yes (Hospitalization)
  Sender: FDA-Public Use
  Company Number: IN-PFIZER INC-2015366582

PATIENT
  Age: 58 Year
  Sex: Male

DRUGS (1)
  1. SUTENT [Suspect]
     Active Substance: SUNITINIB MALATE
     Indication: METASTATIC RENAL CELL CARCINOMA
     Dosage: 50 MG, CYCLIC (ONCE A DAY)
     Route: 048
     Dates: start: 20151007

REACTIONS (11)
  - Pruritus generalised [Recovered/Resolved]
  - Dysgeusia [Not Recovered/Not Resolved]
  - Pyrexia [Recovered/Resolved]
  - Onychalgia [Recovered/Resolved]
  - Oral mucosal eruption [Recovered/Resolved]
  - Platelet count decreased [Recovered/Resolved]
  - Mouth ulceration [Not Recovered/Not Resolved]
  - White blood cell count decreased [Recovered/Resolved]
  - Haemorrhoids [Recovered/Resolved]
  - Rash generalised [Recovered/Resolved]
  - Skin fissures [Recovering/Resolving]

NARRATIVE: CASE EVENT DATE: 2015
